FAERS Safety Report 4842566-3 (Version None)
Quarter: 2005Q4

REPORT INFORMATION
  Report Type: 
  Country: None (occurrence: None)
  Receive Date: 20051201
  Receipt Date: 20040202
  Transmission Date: 20060501
  Serious: Yes (Death)
  Sender: FDA-Public Use
  Company Number: 200410216JP

PATIENT
  Age: 71 Year
  Sex: Female
  Weight: 53 kg

DRUGS (21)
  1. ARAVA [Suspect]
     Indication: RHEUMATOID ARTHRITIS
     Route: 048
     Dates: start: 20030925, end: 20030927
  2. ARAVA [Suspect]
     Route: 048
     Dates: start: 20030928, end: 20040128
  3. GASTER [Concomitant]
     Indication: GASTRITIS
     Route: 048
     Dates: start: 20020902, end: 20031217
  4. GASTER [Concomitant]
     Route: 048
     Dates: start: 20031218, end: 20040204
  5. MOBIC [Concomitant]
     Indication: ARTHRITIS
     Route: 048
     Dates: start: 20020902, end: 20031217
  6. MOBIC [Concomitant]
     Route: 048
     Dates: start: 20031218, end: 20040204
  7. DIOVAN [Concomitant]
     Indication: HYPERTENSION
     Route: 048
     Dates: start: 20021106, end: 20031217
  8. DIOVAN [Concomitant]
     Route: 048
     Dates: start: 20031218, end: 20040204
  9. PREDONINE [Concomitant]
     Indication: ARTHRITIS
     Route: 048
     Dates: start: 20021225, end: 20031217
  10. PREDONINE [Concomitant]
     Route: 048
     Dates: start: 20031218, end: 20040202
  11. BREDININ [Concomitant]
     Indication: ARTHRITIS
     Route: 048
     Dates: start: 20021106, end: 20030917
  12. RHEUMATREX [Concomitant]
     Indication: ARTHRITIS
     Dosage: DOSE: 4MG/WEEK
     Route: 048
     Dates: start: 20030319, end: 20030601
  13. RHEUMATREX [Concomitant]
     Dosage: DOSE: 6MG/WEEK
     Route: 048
     Dates: start: 20030611, end: 20030924
  14. FOLIAMIN [Concomitant]
     Indication: STOMATITIS
     Dosage: DOSE: 10MG/WEEK
     Route: 048
     Dates: start: 20030331, end: 20030924
  15. SHIOSOL [Concomitant]
     Indication: ARTHRITIS
     Dosage: DOSE: 10MG/WEEK
     Route: 030
     Dates: start: 20031217
  16. SHIOSOL [Concomitant]
     Dosage: DOSE: 10MG/WEEK
     Route: 030
     Dates: end: 20040128
  17. PL GRAN. [Concomitant]
     Indication: NASOPHARYNGITIS
     Route: 048
     Dates: start: 20031119, end: 20031123
  18. MEDICON [Concomitant]
     Indication: NASOPHARYNGITIS
     Route: 048
     Dates: start: 20031119, end: 20031123
  19. ALLELOCK [Concomitant]
     Indication: NASOPHARYNGITIS
     Route: 048
     Dates: start: 20031119, end: 20031123
  20. CLARICID [Concomitant]
     Indication: NASOPHARYNGITIS
     Route: 048
     Dates: start: 20031119, end: 20031128
  21. SOLU-MEDROL [Concomitant]
     Indication: INTERSTITIAL LUNG DISEASE
     Route: 042
     Dates: start: 20040202, end: 20040204

REACTIONS (16)
  - BLOOD POTASSIUM INCREASED [None]
  - BLOOD SODIUM DECREASED [None]
  - CHOLECYSTITIS CHRONIC [None]
  - DISSEMINATED INTRAVASCULAR COAGULATION [None]
  - GENERALISED OEDEMA [None]
  - HEPATIC FAILURE [None]
  - INTERSTITIAL LUNG DISEASE [None]
  - LIVER DISORDER [None]
  - MELAENA [None]
  - MULTI-ORGAN FAILURE [None]
  - PANCREATITIS CHRONIC [None]
  - PNEUMOCYSTIS JIROVECI PNEUMONIA [None]
  - PNEUMONIA STAPHYLOCOCCAL [None]
  - PNEUMOTHORAX [None]
  - RENAL FAILURE [None]
  - RHEUMATOID LUNG [None]
